FAERS Safety Report 19583270 (Version 3)
Quarter: 2021Q3

REPORT INFORMATION
  Report Type: Spontaneous
  Country: CA (occurrence: CA)
  Receive Date: 20210720
  Receipt Date: 20210903
  Transmission Date: 20211014
  Serious: Yes (Hospitalization, Other)
  Sender: FDA-Public Use
  Company Number: CA-PFIZER INC-2020363217

PATIENT
  Age: 78 Year
  Sex: Male

DRUGS (16)
  1. XELJANZ [Suspect]
     Active Substance: TOFACITINIB CITRATE
     Dosage: 10 MG, 2X/DAY
     Route: 048
     Dates: start: 202107, end: 202107
  2. AMLODIPINE [Concomitant]
     Active Substance: AMLODIPINE BESYLATE
     Dosage: 5 MG, DAILY
     Route: 065
  3. MEZAVANT [Concomitant]
     Active Substance: MESALAMINE
     Dosage: 2 DF, DAILY
     Route: 054
  4. PREDNISONE. [Concomitant]
     Active Substance: PREDNISONE
     Dosage: 40 MG
     Route: 048
     Dates: start: 20210705
  5. CANDESARTAN. [Concomitant]
     Active Substance: CANDESARTAN
     Dosage: 8 MG, DAILY
     Route: 065
  6. ENTYVIO [Concomitant]
     Active Substance: VEDOLIZUMAB
     Dosage: 1 DF
     Route: 065
  7. XELJANZ [Suspect]
     Active Substance: TOFACITINIB CITRATE
     Indication: COLITIS ULCERATIVE
     Dosage: 10 MG, 2X/DAY
     Route: 048
     Dates: start: 20200813, end: 202107
  8. PREDNISONE. [Concomitant]
     Active Substance: PREDNISONE
     Dosage: 5 DF, DAILY (TAPERING)
     Route: 048
  9. CORTISONE [Concomitant]
     Active Substance: CORTISONE
     Dosage: 6 DF, DAILY (6 PILLS A DAY)
  10. TYLENOL [Concomitant]
     Active Substance: ACETAMINOPHEN
     Dosage: 8 DF, DAILY
  11. PREDNISONE. [Concomitant]
     Active Substance: PREDNISONE
     Dosage: 2 DF, DAILY (TAPERING)
     Route: 048
  12. CORTISONE [Concomitant]
     Active Substance: CORTISONE
     Dosage: 5 DF, DAILY (5 PILLS A DAY)
  13. MEZAVANT [Concomitant]
     Active Substance: MESALAMINE
     Dosage: 4 DF, DAILY (4 TABLETS DAILY)
     Route: 048
  14. PREDNISONE. [Concomitant]
     Active Substance: PREDNISONE
     Dosage: 25 MG
  15. CALCIUM;VITAMIN D [Concomitant]
     Active Substance: CALCIUM\VITAMIN D
     Dosage: 2X/DAY
     Route: 065
  16. ROSUVASTATIN. [Concomitant]
     Active Substance: ROSUVASTATIN
     Dosage: 10 MG, DAILY
     Route: 065

REACTIONS (12)
  - Frequent bowel movements [Recovering/Resolving]
  - Fatigue [Unknown]
  - Back pain [Unknown]
  - Abnormal faeces [Unknown]
  - Clostridium difficile infection [Unknown]
  - Type 2 diabetes mellitus [Unknown]
  - Abdominal discomfort [Unknown]
  - Diarrhoea [Unknown]
  - Flatulence [Unknown]
  - Heart rate increased [Unknown]
  - Constipation [Unknown]
  - Depression [Unknown]

NARRATIVE: CASE EVENT DATE: 2020
